FAERS Safety Report 25355503 (Version 3)
Quarter: 2025Q4

REPORT INFORMATION
  Report Type: Spontaneous
  Country: US (occurrence: US)
  Receive Date: 20250525
  Receipt Date: 20251009
  Transmission Date: 20260119
  Serious: No
  Sender: SANOFI AVENTIS
  Company Number: US-SA-2025SA145548

PATIENT
  Age: 9 Year
  Sex: Male

DRUGS (1)
  1. DUPIXENT [Suspect]
     Active Substance: DUPILUMAB
     Indication: Eosinophilic oesophagitis
     Dosage: 300 MG, QOW
     Route: 058
     Dates: start: 20250421

REACTIONS (10)
  - Skin discolouration [Unknown]
  - Pain [Not Recovered/Not Resolved]
  - Dysphagia [Unknown]
  - Retching [Not Recovered/Not Resolved]
  - Odynophagia [Unknown]
  - Rash [Unknown]
  - Injection site pain [Recovered/Resolved]
  - Fear of eating [Not Recovered/Not Resolved]
  - Food refusal [Not Recovered/Not Resolved]
  - Weight increased [Unknown]

NARRATIVE: CASE EVENT DATE: 20250101
